FAERS Safety Report 18382472 (Version 1)
Quarter: 2020Q4

REPORT INFORMATION
  Report Type: Spontaneous
  Country: US (occurrence: US)
  Receive Date: 20201014
  Receipt Date: 20201014
  Transmission Date: 20210114
  Serious: No
  Sender: FDA-Public Use
  Company Number: US-ALLERGAN-2031339US

PATIENT
  Age: 38 Year
  Sex: Female

DRUGS (2)
  1. UBRELVY [Suspect]
     Active Substance: UBROGEPANT
     Indication: MIGRAINE
     Dosage: 1 DF, BI-WEEKLY
     Route: 048
  2. UBRELVY [Suspect]
     Active Substance: UBROGEPANT
     Dosage: 1 DF, BI-WEEKLY
     Route: 048

REACTIONS (1)
  - Drug ineffective [Unknown]
